FAERS Safety Report 10439098 (Version 1)
Quarter: 2014Q3

REPORT INFORMATION
  Report Type: Spontaneous
  Country: US (occurrence: US)
  Receive Date: 20140908
  Receipt Date: 20140908
  Transmission Date: 20150326
  Serious: No
  Sender: FDA-Public Use
  Company Number: US-BRISTOL-MYERS SQUIBB COMPANY-19919943

PATIENT
  Age: 37 Year
  Sex: Male
  Weight: 88.43 kg

DRUGS (1)
  1. ABILIFY [Suspect]
     Active Substance: ARIPIPRAZOLE
     Indication: BIPOLAR I DISORDER
     Dosage: DOSE REDUCED TO 2.5MG
     Dates: start: 2013

REACTIONS (2)
  - Epistaxis [Unknown]
  - Restlessness [Not Recovered/Not Resolved]
